FAERS Safety Report 16834092 (Version 2)
Quarter: 2019Q3

REPORT INFORMATION
  Report Type: Spontaneous
  Country: JP (occurrence: JP)
  Receive Date: 20190920
  Receipt Date: 20190920
  Transmission Date: 20191005
  Serious: Yes (Life-Threatening, Hospitalization, Other)
  Sender: FDA-Public Use
  Company Number: PHHY2019JP217425

PATIENT
  Age: 74 Year
  Sex: Male

DRUGS (9)
  1. PREDNISOLONE. [Suspect]
     Active Substance: PREDNISOLONE
     Dosage: 60 MG, Q24H,GRADUALLY REDUCED AND WAS ADMINISTERED OVER 1 MONTH
     Route: 065
     Dates: start: 2017
  2. PREDNISOLONE. [Suspect]
     Active Substance: PREDNISOLONE
     Dosage: 40 MG, Q24H, GRADUALLY REDUCED AND WAS ADMINISTERED OVER 1 MONTH
     Route: 065
     Dates: start: 2017, end: 2017
  3. METHYLPREDNISOLONE. [Suspect]
     Active Substance: METHYLPREDNISOLONE
     Dosage: 500 MG, Q24H,PULSE THERAPY (500 MG/DAY X 3 DAYS)
     Route: 065
     Dates: start: 2017, end: 2017
  4. PREDNISOLONE. [Suspect]
     Active Substance: PREDNISOLONE
     Indication: HAEMOPHAGOCYTIC LYMPHOHISTIOCYTOSIS
     Dosage: 80 MG/DAY (1 MG/KG/DAY)
     Route: 065
     Dates: start: 201708
  5. PREDNISOLONE. [Suspect]
     Active Substance: PREDNISOLONE
     Indication: HAEMOLYSIS
     Dosage: 50 MG, GRADUALLY REDUCED AND WAS ADMINISTERED OVER 1 MONTH
     Route: 065
     Dates: start: 2017
  6. METHYLPREDNISOLONE. [Suspect]
     Active Substance: METHYLPREDNISOLONE
     Indication: BRONCHOPULMONARY ASPERGILLOSIS
     Dosage: 250 MG, UNK
     Route: 065
     Dates: start: 2017, end: 2017
  7. CEFOPERAZONE, SULBACTAM [Suspect]
     Active Substance: CEFOPERAZONE SODIUM\SULBACTAM
     Indication: CHOLECYSTITIS ACUTE
     Dosage: UNK
     Route: 065
  8. AMPHOTERICIN B. [Concomitant]
     Active Substance: AMPHOTERICIN B
     Indication: BRONCHOPULMONARY ASPERGILLOSIS
     Dosage: UNK
     Route: 065
  9. CICLOSPORIN [Suspect]
     Active Substance: CYCLOSPORINE
     Indication: PAROXYSMAL NOCTURNAL HAEMOGLOBINURIA
     Dosage: 200 MG
     Route: 065
     Dates: start: 2002

REACTIONS (4)
  - Gastrointestinal candidiasis [Not Recovered/Not Resolved]
  - Steroid diabetes [Unknown]
  - Fungal peritonitis [Not Recovered/Not Resolved]
  - Gastric perforation [Recovered/Resolved]

NARRATIVE: CASE EVENT DATE: 2017
